FAERS Safety Report 4641411-9 (Version None)
Quarter: 2005Q2

REPORT INFORMATION
  Report Type: 
  Country: None (occurrence: None)
  Receive Date: 20050420
  Receipt Date: 20050420
  Transmission Date: 20051028
  Serious: Yes (Hospitalization)
  Sender: FDA-Public Use
  Company Number: None

PATIENT
  Age: 17 Year
  Sex: Male
  Weight: 149.687 kg

DRUGS (2)
  1. BIAXIN [Suspect]
     Indication: PNEUMONIA
     Dosage: 500MG  BID ORAL
     Route: 048
     Dates: start: 20050331, end: 20050405
  2. ALBUTEROL [Concomitant]

REACTIONS (11)
  - APHTHOUS STOMATITIS [None]
  - CANDIDIASIS [None]
  - CHAPPED LIPS [None]
  - DYSPHAGIA [None]
  - DYSPNOEA [None]
  - LIP DRY [None]
  - LOCALISED OEDEMA [None]
  - LYMPHADENOPATHY [None]
  - STEVENS-JOHNSON SYNDROME [None]
  - SWOLLEN TONGUE [None]
  - TENDERNESS [None]
